FAERS Safety Report 21756761 (Version 3)
Quarter: 2023Q1

REPORT INFORMATION
  Report Type: Spontaneous
  Country: JP (occurrence: None)
  Receive Date: 20221220
  Receipt Date: 20230105
  Transmission Date: 20230417
  Serious: Yes (Hospitalization)
  Sender: FDA-Public Use
  Company Number: 2022A374758

PATIENT
  Age: 73 Year
  Sex: Male
  Weight: 65 kg

DRUGS (28)
  1. LOKELMA [Suspect]
     Active Substance: SODIUM ZIRCONIUM CYCLOSILICATE
     Indication: Hyperkalaemia
     Dosage: DOSE UNKNOWN
     Route: 048
     Dates: start: 20210204, end: 20210321
  2. LOKELMA [Suspect]
     Active Substance: SODIUM ZIRCONIUM CYCLOSILICATE
     Indication: Hyperkalaemia
     Dosage: AFTER BREAKFAST
     Route: 048
     Dates: start: 20210322, end: 20210816
  3. LOKELMA [Suspect]
     Active Substance: SODIUM ZIRCONIUM CYCLOSILICATE
     Indication: Hyperkalaemia
     Dosage: AFTER BREAKFAST
     Route: 048
     Dates: start: 20210825, end: 20220208
  4. LOKELMA [Suspect]
     Active Substance: SODIUM ZIRCONIUM CYCLOSILICATE
     Indication: Hyperkalaemia
     Dosage: AFTER BREAKFAST
     Route: 048
     Dates: start: 20221011, end: 20221013
  5. INSULIN NOS [Concomitant]
     Active Substance: INSULIN NOS
     Indication: Diabetes mellitus
     Dosage: DOSE UNKNOWN
     Route: 065
  6. DIETARY SUPPLEMENT\PROBIOTICS [Concomitant]
     Active Substance: DIETARY SUPPLEMENT\PROBIOTICS
     Indication: Abdominal discomfort
     Dosage: DOSE UNKNOWN
     Route: 065
  7. AMLODIPINE [Concomitant]
     Active Substance: AMLODIPINE BESYLATE
     Indication: Hypertension
     Dosage: AFTER BREAKFAST
     Route: 048
     Dates: start: 20210223
  8. XARELTO [Concomitant]
     Active Substance: RIVAROXABAN
     Indication: Deep vein thrombosis
     Route: 048
     Dates: start: 20210223
  9. VADADUSTAT [Concomitant]
     Active Substance: VADADUSTAT
     Indication: Nephrogenic anaemia
     Dosage: AFTER BREAKFAST
     Route: 048
     Dates: start: 20210223
  10. VADADUSTAT [Concomitant]
     Active Substance: VADADUSTAT
     Indication: Nephrogenic anaemia
     Dosage: AFTER BREAKFAST
     Route: 048
     Dates: start: 20210323
  11. VADADUSTAT [Concomitant]
     Active Substance: VADADUSTAT
     Indication: Nephrogenic anaemia
     Dosage: AFTER BREAKFAST
     Route: 048
     Dates: start: 20221011
  12. SODIUM FERROUS CITRATE [Concomitant]
     Active Substance: SODIUM FERROUS CITRATE
     Indication: Iron deficiency anaemia
     Dosage: AFTER EVENING MEAL
     Route: 048
     Dates: start: 20210223
  13. SILVER SULFADIAZINE [Concomitant]
     Active Substance: SILVER SULFADIAZINE
     Indication: Wound abscess
     Dosage: APPLIIED
     Route: 062
  14. TSUMURA ORENTO EXTRACT [Concomitant]
     Route: 048
  15. DIPHENHYDRAMINE [Concomitant]
     Active Substance: DIPHENHYDRAMINE
     Indication: Pruritus
     Dosage: DOSE UNKNOWN, SEVERAL TIMES/DAY, APPLIED TO SECOND THIGHS
     Route: 062
     Dates: start: 20210322
  16. TERBINAFINE HYDROCHLORIDE [Concomitant]
     Active Substance: TERBINAFINE HYDROCHLORIDE
     Indication: Tinea pedis
     Dosage: DOSE UNKNOWN, AFTER TAKING BATH, APPLIED TO SOLES
     Route: 062
     Dates: start: 20210322
  17. FEBUXOSTAT [Concomitant]
     Active Substance: FEBUXOSTAT
     Indication: Hyperuricaemia
     Dosage: AFTER BREAKFAST
     Route: 048
     Dates: start: 20210825
  18. MIRABEGRON [Concomitant]
     Active Substance: MIRABEGRON
     Route: 048
     Dates: start: 20210825
  19. CEFCAPENE PIVOXIL HYDROCHLORIDE HYDRATE [Concomitant]
     Active Substance: CEFCAPENE PIVOXIL HYDROCHLORIDE HYDRATE
     Indication: Wound abscess
     Dosage: AFTER BREAKFAST
     Route: 048
     Dates: start: 20210825
  20. RABEPRAZOLE SODIUM [Concomitant]
     Active Substance: RABEPRAZOLE SODIUM
     Indication: Gastrooesophageal reflux disease
     Dosage: AFTER EVENING MEAL
     Route: 048
     Dates: start: 20210825
  21. MIYA-BM [Concomitant]
     Active Substance: CLOSTRIDIUM BUTYRICUM SPORES STRAIN M-55
  22. LOPERAMIDE [Concomitant]
     Active Substance: LOPERAMIDE
  23. HUMALOG [Concomitant]
     Active Substance: INSULIN LISPRO
     Indication: Diabetes mellitus
     Dosage: 5 IU DAILY IN THE MORNING, NOON, EVENING
     Route: 065
     Dates: start: 20210825
  24. LANTUS [Concomitant]
     Active Substance: INSULIN GLARGINE
     Indication: Diabetes mellitus
     Dosage: 6 IU DAILY IN THE MORNING
     Route: 065
     Dates: start: 20210825
  25. LANTUS [Concomitant]
     Active Substance: INSULIN GLARGINE
     Indication: Diabetes mellitus
     Dosage: 5 IU DAILY IN THE MORNING
     Route: 065
     Dates: start: 20221011
  26. FEBUXOSTAT [Concomitant]
     Active Substance: FEBUXOSTAT
     Indication: Hyperuricaemia
     Route: 048
     Dates: start: 20221011
  27. MINOCYCLINE HYDROCHLORIDE [Concomitant]
     Active Substance: MINOCYCLINE HYDROCHLORIDE
     Indication: Wound abscess
     Dosage: AFTER BREAKFAST
     Route: 048
     Dates: start: 20221011
  28. AZUNOL [Concomitant]

REACTIONS (7)
  - Malnutrition [Unknown]
  - Enterocolitis [Recovering/Resolving]
  - Faeces soft [Unknown]
  - Diarrhoea [Recovered/Resolved]
  - Skin erosion [Recovering/Resolving]
  - Scrotal oedema [Recovering/Resolving]
  - Hypertonic bladder [Not Recovered/Not Resolved]

NARRATIVE: CASE EVENT DATE: 20210208
